FAERS Safety Report 8154227-6 (Version None)
Quarter: 2012Q1

REPORT INFORMATION
  Report Type: 
  Country: None (occurrence: None)
  Receive Date: 20120215
  Receipt Date: 20120208
  Transmission Date: 20120608
  Serious: Yes (Hospitalization)
  Sender: FDA-Public Use
  Company Number: 2011SP040942

PATIENT
  Age: 38 Year
  Sex: Female
  Weight: 74.3899 kg

DRUGS (5)
  1. VALTREX [Concomitant]
  2. YAZ [Concomitant]
  3. IMITREX [Concomitant]
  4. NUVARING [Suspect]
     Indication: MENSTRUATION IRREGULAR
     Dates: start: 20090902, end: 20090915
  5. NUVARING [Suspect]
     Indication: MIGRAINE
     Dates: start: 20090902, end: 20090915

REACTIONS (19)
  - LUNG DISORDER [None]
  - ACNE [None]
  - EXERCISE TOLERANCE DECREASED [None]
  - VOMITING [None]
  - MIGRAINE [None]
  - MENOPAUSAL SYMPTOMS [None]
  - PLEURAL EFFUSION [None]
  - MENTAL DISORDER [None]
  - EMOTIONAL DISORDER [None]
  - CONDITION AGGRAVATED [None]
  - STRESS [None]
  - SALPINGITIS [None]
  - CYST [None]
  - PULMONARY INFARCTION [None]
  - PULMONARY EMBOLISM [None]
  - DEPRESSION [None]
  - ANXIETY [None]
  - NAUSEA [None]
  - COGNITIVE DISORDER [None]
